FAERS Safety Report 8152804-X (Version None)
Quarter: 2012Q1

REPORT INFORMATION
  Report Type: 
  Country: None (occurrence: None)
  Receive Date: 20120215
  Receipt Date: 20120203
  Transmission Date: 20120608
  Serious: Yes (Death, Hospitalization)
  Sender: FDA-Public Use
  Company Number: UTC-013651

PATIENT
  Age: 60 Year
  Sex: Female
  Weight: 52 kg

DRUGS (3)
  1. REMODULIN [Suspect]
     Indication: PULMONARY ARTERIAL HYPERTENSION
     Dosage: 24.48 UG/KG (0.017 UG/KG, 1 IN 1 MIN), SUBCUTANEOUS
     Route: 058
     Dates: start: 20061122
  2. REVATIO [Concomitant]
  3. TRACLEER [Concomitant]

REACTIONS (1)
  - DEATH [None]
